FAERS Safety Report 8359183-3 (Version None)
Quarter: 2012Q2

REPORT INFORMATION
  Report Type: 
  Country: None (occurrence: None)
  Receive Date: 20120515
  Receipt Date: 20120507
  Transmission Date: 20120825
  Serious: Yes (Other)
  Sender: FDA-Public Use
  Company Number: US-BAYER-2012-012533

PATIENT
  Age: 40 Year
  Sex: Female
  Weight: 176.42 kg

DRUGS (2)
  1. MIRENA [Suspect]
     Indication: CONTRACEPTION
  2. MIRENA [Suspect]
     Indication: DYSFUNCTIONAL UTERINE BLEEDING
     Dosage: 20 MCG/24HR, CONT
     Route: 015
     Dates: start: 20110810, end: 20111204

REACTIONS (3)
  - OEDEMA PERIPHERAL [None]
  - THROMBOSIS [None]
  - PAIN IN EXTREMITY [None]
